FAERS Safety Report 7437609-7 (Version None)
Quarter: 2011Q2

REPORT INFORMATION
  Report Type: 
  Country: None (occurrence: None)
  Receive Date: 20110426
  Receipt Date: 20110420
  Transmission Date: 20111010
  Serious: Yes (Hospitalization, Other)
  Sender: FDA-Public Use
  Company Number: DE-ABBOTT-11P-062-0712003-00

PATIENT
  Sex: Female

DRUGS (3)
  1. BUDESONIDE [Concomitant]
     Indication: CROHN'S DISEASE
     Dosage: UNKNOWN
  2. HUMIRA [Suspect]
     Indication: CROHN'S DISEASE
     Dosage: 40 MG ONCE
     Route: 058
     Dates: start: 20101227, end: 20101227
  3. THYROID HORMONE [Concomitant]
     Indication: THYROID DISORDER
     Dosage: UNKNOWN

REACTIONS (2)
  - PURULENT DISCHARGE [None]
  - GASTROINTESTINAL INFLAMMATION [None]
